FAERS Safety Report 14607747 (Version 1)
Quarter: 2018Q1

REPORT INFORMATION
  Report Type: Spontaneous
  Country: US (occurrence: US)
  Receive Date: 20180305
  Receipt Date: 20180305
  Transmission Date: 20180509
  Serious: Yes (Other)
  Sender: FDA-Public Use
  Company Number: None

PATIENT

DRUGS (2)
  1. TIANAA [Suspect]
     Active Substance: DIETARY SUPPLEMENT
  2. SUBOXONE [Suspect]
     Active Substance: BUPRENORPHINE HYDROCHLORIDE\NALOXONE HYDROCHLORIDE

REACTIONS (9)
  - Depression [None]
  - Chills [None]
  - Anxiety [None]
  - Pain [None]
  - Diarrhoea [None]
  - Product formulation issue [None]
  - Limb injury [None]
  - Drug dependence [None]
  - Withdrawal syndrome [None]

NARRATIVE: CASE EVENT DATE: 20180201
